FAERS Safety Report 15664175 (Version 1)
Quarter: 2018Q4

REPORT INFORMATION
  Report Type: Report from Study
  Country: US (occurrence: US)
  Receive Date: 20181128
  Receipt Date: 20181128
  Transmission Date: 20190205
  Serious: No
  Sender: FDA-Public Use
  Company Number: US-IPSEN BIOPHARMACEUTICALS, INC.-2018-17855

PATIENT
  Sex: Female
  Weight: 54.4 kg

DRUGS (5)
  1. ESTROGEN [Concomitant]
     Active Substance: ESTROGENS
     Indication: COELIAC DISEASE
  2. DYSPORT [Suspect]
     Active Substance: ABOBOTULINUMTOXINA
     Indication: TORTICOLLIS
     Dosage: NOT REPORTED
     Route: 058
  3. POTASSIUM [Concomitant]
     Active Substance: POTASSIUM
     Indication: COELIAC DISEASE
  4. CALCIUM [Concomitant]
     Active Substance: CALCIUM
     Indication: COELIAC DISEASE
  5. VITAMIN D [Concomitant]
     Active Substance: CHOLECALCIFEROL
     Indication: COELIAC DISEASE

REACTIONS (4)
  - Dysphagia [Unknown]
  - Musculoskeletal disorder [Unknown]
  - Drug effect decreased [Unknown]
  - Tremor [Unknown]
